FAERS Safety Report 7604216-2 (Version None)
Quarter: 2011Q3

REPORT INFORMATION
  Report Type: 
  Country: None (occurrence: None)
  Receive Date: 20110712
  Receipt Date: 20110629
  Transmission Date: 20111222
  Serious: Yes (Death, Life-Threatening, Hospitalization, Disabling, Other)
  Sender: FDA-Public Use
  Company Number: US-MERCK-1106USA01169

PATIENT
  Age: 75 Year
  Sex: Female
  Weight: 52 kg

DRUGS (27)
  1. PLAVIX [Concomitant]
     Route: 065
  2. NOVOLOG [Concomitant]
     Route: 058
  3. LANTUS [Concomitant]
     Route: 065
  4. NITROGLYCERIN [Concomitant]
     Route: 065
  5. LIPITOR [Suspect]
     Route: 065
  6. KLOR-CON [Concomitant]
     Route: 065
  7. AZOR (ALPRAZOLAM) [Concomitant]
     Route: 065
  8. NOVOLOG [Concomitant]
     Route: 065
  9. ADVAIR DISKUS 100/50 [Concomitant]
     Route: 065
  10. ALBUTEROL [Concomitant]
     Route: 065
  11. ASPIRIN [Concomitant]
     Route: 065
  12. SPIRIVA [Concomitant]
     Route: 065
  13. COREG [Concomitant]
     Route: 065
  14. DARVOCET-N 50 [Concomitant]
     Route: 048
  15. PROVENTIL [Concomitant]
     Route: 065
  16. VITAMIN D (UNSPECIFIED) [Concomitant]
     Route: 065
  17. CLONIDINE [Concomitant]
     Route: 065
  18. ZOCOR [Suspect]
     Indication: BLOOD CHOLESTEROL INCREASED
     Route: 048
     Dates: start: 20100315, end: 20101023
  19. NORVASC [Concomitant]
     Route: 065
  20. AMLODIPINE [Suspect]
     Route: 065
  21. NEFAZODONE HCL [Suspect]
     Route: 065
  22. PREDNISONE [Concomitant]
     Route: 065
  23. VISTARIL [Concomitant]
     Route: 065
  24. PROTONIX [Concomitant]
     Route: 048
  25. POTASSIUM (UNSPECIFIED) [Concomitant]
     Route: 065
  26. PROZAC [Concomitant]
     Route: 065
  27. COZAAR [Concomitant]
     Route: 048

REACTIONS (21)
  - CONSTIPATION [None]
  - RHABDOMYOLYSIS [None]
  - DIARRHOEA [None]
  - DIABETES MELLITUS INADEQUATE CONTROL [None]
  - HEPATITIS [None]
  - LACERATION [None]
  - HYPOALBUMINAEMIA [None]
  - FATIGUE [None]
  - CARDIO-RESPIRATORY ARREST [None]
  - NIGHT SWEATS [None]
  - INSOMNIA [None]
  - MULTI-ORGAN FAILURE [None]
  - PNEUMONIA [None]
  - RENAL FAILURE [None]
  - GLYCOSYLATED HAEMOGLOBIN INCREASED [None]
  - CORONARY ARTERY DISEASE [None]
  - DYSPHONIA [None]
  - HYPOKALAEMIA [None]
  - ASTHENIA [None]
  - FALL [None]
  - HAEMOGLOBIN INCREASED [None]
